FAERS Safety Report 10144008 (Version 4)
Quarter: 2014Q2

REPORT INFORMATION
  Report Type: Report from Study
  Country: GB (occurrence: GB)
  Receive Date: 20140430
  Receipt Date: 20140620
  Transmission Date: 20141212
  Serious: Yes (Other)
  Sender: FDA-Public Use
  Company Number: GB-ABBVIE-14P-167-1229259-00

PATIENT
  Age: 64 Year
  Sex: Female
  Weight: 91 kg

DRUGS (15)
  1. HUMIRA [Suspect]
     Indication: PRODUCT USED FOR UNKNOWN INDICATION
     Dosage: 40MG/0.8ML
     Dates: start: 20131225, end: 20140404
  2. FENTANYL [Concomitant]
     Indication: PRODUCT USED FOR UNKNOWN INDICATION
     Dosage: TRANSDERMAL PATCH 12 UG/HR
     Route: 062
  3. PREDNISOLONE [Concomitant]
     Indication: PRODUCT USED FOR UNKNOWN INDICATION
     Dosage: ON REDUCING DOSE OF 1MG AS TOLERATED
  4. LEVOTHYROXINE SODIUM [Concomitant]
     Indication: PRODUCT USED FOR UNKNOWN INDICATION
     Dates: start: 201210
  5. LEVOTHYROXINE SODIUM [Concomitant]
     Dates: start: 201210
  6. PROPRANOLOL [Concomitant]
     Indication: PRODUCT USED FOR UNKNOWN INDICATION
     Dosage: ONE EACH MORNING
  7. OMEPRAZOLE [Concomitant]
     Indication: PRODUCT USED FOR UNKNOWN INDICATION
     Dosage: 1 DAILY WHILST TAKING ANTI-INFLAMMATORY
  8. SUMATRIPTAN [Concomitant]
     Indication: PRODUCT USED FOR UNKNOWN INDICATION
     Dosage: TAKE ONE AS DIRECTED
  9. FOLIC ACID [Concomitant]
     Indication: PRODUCT USED FOR UNKNOWN INDICATION
     Dosage: EXCEPT WHEN TAKING METHOTREXATE
  10. METHOTREXATE [Concomitant]
     Indication: PRODUCT USED FOR UNKNOWN INDICATION
     Dosage: EXCEPT WHEN TAKING FOLIC ACID
  11. ALENDRONIC ACID [Concomitant]
     Indication: PRODUCT USED FOR UNKNOWN INDICATION
     Dosage: TAKE AT LEAST 30 MINS BEFORE FIRST FOOD
  12. ADCAL D3 [Concomitant]
     Indication: PRODUCT USED FOR UNKNOWN INDICATION
     Dosage: 700MG/200 UNIT CAPSULE 2 TABLETS TWICE A DAY
  13. DIHYDROCODEINE [Concomitant]
     Indication: PAIN
     Dosage: 1-2 FOUR TIMES A DAY AS REQUIRED
  14. PARACETAMOL [Concomitant]
     Indication: PRODUCT USED FOR UNKNOWN INDICATION
     Dosage: 2 TO BE TAKEN 4 TIMES A DAY
  15. AMITRIPTYLINE [Concomitant]
     Indication: PRODUCT USED FOR UNKNOWN INDICATION
     Dosage: 1 TO BE TAKEN AT BEDTIME

REACTIONS (16)
  - Injection site induration [Unknown]
  - Injection site warmth [Unknown]
  - Injection site erythema [Unknown]
  - Swelling [Recovered/Resolved]
  - Injection site swelling [Recovered/Resolved]
  - Injection site erythema [Unknown]
  - Injection site warmth [Unknown]
  - Injection site reaction [Unknown]
  - Nausea [Unknown]
  - Chest pain [Unknown]
  - Unevaluable event [Unknown]
  - Rash [Not Recovered/Not Resolved]
  - Discomfort [Recovering/Resolving]
  - Pain [Recovered/Resolved]
  - Injection site rash [Not Recovered/Not Resolved]
  - Injection site pain [Recovered/Resolved]
